FAERS Safety Report 16932369 (Version 1)
Quarter: 2019Q4

REPORT INFORMATION
  Report Type: Spontaneous
  Country: US (occurrence: US)
  Receive Date: 20191017
  Receipt Date: 20191017
  Transmission Date: 20200122
  Serious: No
  Sender: FDA-Public Use
  Company Number: US-009507513-1910USA005233

PATIENT
  Age: 58 Year
  Sex: Female

DRUGS (4)
  1. MOMETASONE FUROATE. [Suspect]
     Active Substance: MOMETASONE FUROATE
     Dosage: UNK
     Dates: start: 20190808
  2. VITAMINS (UNSPECIFIED) [Concomitant]
     Active Substance: VITAMINS
  3. ELOCON [Suspect]
     Active Substance: MOMETASONE FUROATE
     Dosage: 2 TIMES A DAY AS NEEDED, TOPICALLY ON SKIN
     Route: 061
     Dates: start: 200910
  4. MOMETASONE FUROATE (WARRICK) [Suspect]
     Active Substance: MOMETASONE FUROATE
     Dosage: UNK
     Dates: start: 201810

REACTIONS (5)
  - Drug ineffective [Unknown]
  - Skin disorder [Recovered/Resolved]
  - Pruritus [Recovered/Resolved]
  - Keloid scar [Recovered/Resolved]
  - Inappropriate schedule of product administration [Unknown]

NARRATIVE: CASE EVENT DATE: 200910
